FAERS Safety Report 4870752-5 (Version None)
Quarter: 2005Q4

REPORT INFORMATION
  Report Type: 
  Country: None (occurrence: None)
  Receive Date: 20051229
  Receipt Date: 20051220
  Transmission Date: 20060501
  Serious: Yes (Hospitalization)
  Sender: FDA-Public Use
  Company Number: GXKR2005FR02182

PATIENT
  Age: 77 Year
  Sex: Female

DRUGS (3)
  1. IBUPROFEN [Suspect]
     Dosage: 400 MG, TID, ORAL
     Route: 048
     Dates: start: 20050903, end: 20050904
  2. BIRODOGYL (METRONIDAZOLE, SPIRAMYCIN) [Concomitant]
  3. PARACETAMOL WITH CODEINE PHOSPHATE (CODEINE PHOSPHATE, PARACETAMOL) [Concomitant]

REACTIONS (3)
  - CELLULITIS [None]
  - PURULENT DISCHARGE [None]
  - TOOTH DISORDER [None]
